FAERS Safety Report 4551040-3 (Version None)
Quarter: 2005Q1

REPORT INFORMATION
  Report Type: 
  Country: None (occurrence: None)
  Receive Date: 20050113
  Receipt Date: 20040701
  Transmission Date: 20050727
  Serious: No
  Sender: FDA-Public Use
  Company Number: US-BRISTOL-MYERS SQUIBB COMPANY-12631016

PATIENT
  Sex: Male

DRUGS (3)
  1. TRAZODONE HCL [Suspect]
  2. HALCION [Concomitant]
  3. AMBIEN [Concomitant]

REACTIONS (1)
  - BARBITURATES POSITIVE [None]
